FAERS Safety Report 22254349 (Version 2)
Quarter: 2023Q2

REPORT INFORMATION
  Report Type: Other
  Country: US (occurrence: None)
  Receive Date: 20230426
  Receipt Date: 20230614
  Transmission Date: 20230721
  Serious: Yes (Other)
  Sender: FDA-Public Use
  Company Number: US-ROCHE-3336347

PATIENT
  Age: 69 Year
  Sex: Male
  Weight: 81.72 kg

DRUGS (7)
  1. RITUXAN [Suspect]
     Active Substance: RITUXIMAB
     Indication: Follicular lymphoma
     Dosage: RECENT RELAPSED/REFRACTORY LINE OF THERAPY: 21/NOV/2022
     Route: 065
  2. GAZYVA [Suspect]
     Active Substance: OBINUTUZUMAB
     Indication: Follicular lymphoma
     Dosage: RECENT RELAPSED/REFRACTORY LINE OF THERAPY: 21/NOV/2022
     Route: 042
  3. VINCRISTINE [Suspect]
     Active Substance: VINCRISTINE
     Indication: Follicular lymphoma
     Route: 065
  4. DOXORUBICIN [Suspect]
     Active Substance: DOXORUBICIN
     Indication: Follicular lymphoma
     Route: 065
  5. CYCLOPHOSPHAMIDE [Suspect]
     Active Substance: CYCLOPHOSPHAMIDE
     Indication: Follicular lymphoma
     Route: 065
  6. PREDNISONE [Suspect]
     Active Substance: PREDNISONE
     Indication: Follicular lymphoma
     Route: 065
  7. REVLIMID [Concomitant]
     Active Substance: LENALIDOMIDE

REACTIONS (1)
  - Cardiac failure congestive [Unknown]
